FAERS Safety Report 10228184 (Version 1)
Quarter: 2014Q2

REPORT INFORMATION
  Report Type: Spontaneous
  Country: FI (occurrence: FI)
  Receive Date: 20140610
  Receipt Date: 20140610
  Transmission Date: 20141212
  Serious: Yes (Disabling)
  Sender: FDA-Public Use
  Company Number: FI-B.I. PHARMACEUTICALS,INC./RIDGEFIELD-2014-BI-24986SF

PATIENT
  Age: 65 Year
  Sex: Male

DRUGS (5)
  1. PERSANTIN [Suspect]
     Indication: CEREBROVASCULAR ACCIDENT PROPHYLAXIS
     Dosage: 225 MG
     Route: 048
     Dates: start: 20140408
  2. PRIMASPAN [Concomitant]
     Indication: THROMBOSIS PROPHYLAXIS
     Dosage: 100 MG
     Route: 048
  3. BURANA [Concomitant]
     Indication: PAIN IN EXTREMITY
     Dosage: 1200 MG
     Route: 048
  4. BURANA [Concomitant]
     Indication: SELF-MEDICATION
  5. PANACOD [Concomitant]
     Indication: PAIN IN EXTREMITY
     Dosage: DOSE PER APPLICATION: 500/30 MG DAILY DOSE:1500/90 MG
     Route: 048

REACTIONS (4)
  - Musculoskeletal stiffness [Not Recovered/Not Resolved]
  - Musculoskeletal stiffness [Not Recovered/Not Resolved]
  - Tenosynovitis [Not Recovered/Not Resolved]
  - Off label use [Unknown]
